FAERS Safety Report 18975515 (Version 1)
Quarter: 2021Q1

REPORT INFORMATION
  Report Type: Spontaneous
  Country: BR (occurrence: BR)
  Receive Date: 20210305
  Receipt Date: 20210305
  Transmission Date: 20210420
  Serious: Yes (Hospitalization, Other)
  Sender: FDA-Public Use
  Company Number: BR-NOVOPROD-790451

PATIENT
  Age: 71 Year
  Sex: Female
  Weight: 99 kg

DRUGS (32)
  1. SAXENDA [Suspect]
     Active Substance: LIRAGLUTIDE
     Indication: PRODUCT USED FOR UNKNOWN INDICATION
     Dosage: 0.6 MG, QD
     Route: 065
     Dates: start: 201701
  2. PROPRANOLOL [Concomitant]
     Active Substance: PROPRANOLOL HYDROCHLORIDE
     Dosage: 40 MG, BID
     Route: 065
     Dates: start: 2009
  3. FIASP [Suspect]
     Active Substance: INSULIN ASPART
     Indication: PRODUCT USED FOR UNKNOWN INDICATION
     Dosage: 4 IU, QD (BEFORE MEALS)
     Route: 065
  4. EZETIMIBE. [Concomitant]
     Active Substance: EZETIMIBE
     Dosage: 10 MG
     Route: 065
  5. LEVOTHYROXINE. [Concomitant]
     Active Substance: LEVOTHYROXINE
     Dosage: 50 ?G
     Route: 065
  6. ROSUVASTATIN. [Concomitant]
     Active Substance: ROSUVASTATIN
     Dosage: 30 MG
     Route: 065
     Dates: start: 2009
  7. SAXENDA [Suspect]
     Active Substance: LIRAGLUTIDE
     Dosage: 2.4 MG, QD
     Route: 065
     Dates: start: 201702
  8. ROSUVASTATIN. [Concomitant]
     Active Substance: ROSUVASTATIN
     Dosage: 40 MG
     Route: 065
  9. LOSARTAN AND HYDROCHLOROTHIAZIDE [Concomitant]
     Active Substance: HYDROCHLOROTHIAZIDE\LOSARTAN POTASSIUM
     Dosage: 100 / 12.5 MG
     Route: 065
     Dates: start: 2009
  10. INSULATARD HM [Suspect]
     Active Substance: INSULIN HUMAN
     Dosage: UNK (DOSE INCREASED)
     Route: 065
  11. SAXENDA [Suspect]
     Active Substance: LIRAGLUTIDE
     Dosage: 1.8 MG, QD
     Route: 065
     Dates: start: 201702
  12. METFORMIN [Concomitant]
     Active Substance: METFORMIN HYDROCHLORIDE
     Dosage: 850 MG, BID
     Route: 065
     Dates: start: 2009
  13. FLUOXETINE [Concomitant]
     Active Substance: FLUOXETINE HYDROCHLORIDE
     Dosage: 20 MG
     Route: 065
     Dates: start: 2009
  14. INSULATARD HM [Suspect]
     Active Substance: INSULIN HUMAN
     Dosage: 60 + 40 UNITS
     Route: 065
     Dates: start: 201701
  15. INSULATARD HM [Suspect]
     Active Substance: INSULIN HUMAN
     Dosage: 18+18 IU
     Route: 065
  16. INSULATARD HM [Suspect]
     Active Substance: INSULIN HUMAN
     Indication: PRODUCT USED FOR UNKNOWN INDICATION
     Dosage: 52 + 10 IU
     Route: 065
     Dates: start: 2009
  17. INSULIN GLARGINE [Concomitant]
     Active Substance: INSULIN GLARGINE
     Dosage: U300 TO 10IU PER DAY
     Route: 065
     Dates: start: 202007
  18. INSULIN GLARGINE [Concomitant]
     Active Substance: INSULIN GLARGINE
     Dosage: U300 FOR 22IU
     Route: 065
     Dates: start: 202005
  19. LEVOTHYROXINE. [Concomitant]
     Active Substance: LEVOTHYROXINE
     Dosage: 25 ?G
     Route: 065
     Dates: start: 2009
  20. MONOCORDIL [Concomitant]
     Active Substance: ISOSORBIDE MONONITRATE
     Dosage: 20 MG
     Route: 065
     Dates: start: 2009
  21. XIGDUO XR [Concomitant]
     Active Substance: DAPAGLIFLOZIN PROPANEDIOL\METFORMIN HYDROCHLORIDE
     Dosage: 10/1000 MG
     Route: 065
     Dates: start: 202007
  22. LOSARTAN. [Concomitant]
     Active Substance: LOSARTAN
     Dosage: 10 MG
     Route: 065
  23. SAXENDA [Suspect]
     Active Substance: LIRAGLUTIDE
     Dosage: 1.2 MG, QD
     Route: 065
     Dates: start: 201701
  24. SITAGLIPTIN [Concomitant]
     Active Substance: SITAGLIPTIN
     Dosage: 100 MG
     Route: 065
     Dates: start: 2009
  25. ACETYLSALICYLIC ACID [Concomitant]
     Active Substance: ASPIRIN
     Dosage: 100 MG
     Route: 065
     Dates: start: 2009
  26. INSULIN GLARGINE [Concomitant]
     Active Substance: INSULIN GLARGINE
     Dosage: U300, 24IU
     Route: 065
     Dates: start: 201908
  27. LINAGLIPTIN [Concomitant]
     Active Substance: LINAGLIPTIN
     Dosage: UNK
     Route: 065
  28. SAXENDA [Suspect]
     Active Substance: LIRAGLUTIDE
     Dosage: 3 MG, QD
     Route: 065
     Dates: start: 201705
  29. DEXAMPHETAMINE [Concomitant]
     Active Substance: AMPHETAMINE
     Dosage: UNK
     Route: 065
  30. INSULATARD HM [Suspect]
     Active Substance: INSULIN HUMAN
     Dosage: 20+20 IU
     Route: 065
     Dates: start: 201705
  31. INSULATARD HM [Suspect]
     Active Substance: INSULIN HUMAN
     Dosage: 50+32 IU
     Route: 065
  32. INSULIN GLARGINE [Concomitant]
     Active Substance: INSULIN GLARGINE
     Dosage: 2 DOSES OF GLARGINE/DAILY
     Route: 065

REACTIONS (5)
  - Knee arthroplasty [Unknown]
  - Blood glucose increased [Unknown]
  - Cholecystitis [Unknown]
  - Hypoglycaemia [Recovering/Resolving]
  - Depression [Unknown]

NARRATIVE: CASE EVENT DATE: 2018
